FAERS Safety Report 9254343 (Version 5)
Quarter: 2014Q4

REPORT INFORMATION
  Report Type: Report from Study
  Country: MX (occurrence: MX)
  Receive Date: 20130425
  Receipt Date: 20141024
  Transmission Date: 20150529
  Serious: Yes (Other)
  Sender: FDA-Public Use
  Company Number: PHHY2013MX040137

PATIENT
  Age: 32 Year
  Sex: Male
  Weight: 70 kg

DRUGS (8)
  1. RAPIX [Concomitant]
     Indication: PAIN
  2. TEMPRA [Concomitant]
     Active Substance: ACETAMINOPHEN
  3. PARACETAMOL [Concomitant]
     Active Substance: ACETAMINOPHEN
     Indication: PAIN
     Dates: start: 20130621, end: 20130630
  4. BREDELIN [Concomitant]
     Dates: start: 20130621, end: 20130630
  5. OMEPRAZOLE. [Concomitant]
     Active Substance: OMEPRAZOLE
  6. NURO-B                             /06116001/ [Concomitant]
     Dates: start: 20131115, end: 20131115
  7. GILENYA [Suspect]
     Active Substance: FINGOLIMOD HYDROCHLORIDE
     Indication: MULTIPLE SCLEROSIS
     Dosage: 0.5 MG, QD
     Route: 048
     Dates: start: 20120925, end: 20140909
  8. KETOPROFENO [Concomitant]

REACTIONS (3)
  - Abdominal pain [Not Recovered/Not Resolved]
  - Transaminases increased [Recovered/Resolved]
  - Gallbladder pain [Not Recovered/Not Resolved]

NARRATIVE: CASE EVENT DATE: 20130406
